FAERS Safety Report 10473675 (Version 2)
Quarter: 2014Q3

REPORT INFORMATION
  Report Type: Report from Study
  Country: US (occurrence: US)
  Receive Date: 20140924
  Receipt Date: 20140927
  Transmission Date: 20150326
  Serious: Yes (Hospitalization)
  Sender: FDA-Public Use
  Company Number: US-MERCK-1409USA010512

PATIENT
  Age: 38 Year
  Sex: Female
  Weight: 92.7 kg

DRUGS (6)
  1. CYTARABINE. [Suspect]
     Active Substance: CYTARABINE
     Indication: ACUTE MYELOID LEUKAEMIA
     Dosage: 750 MG/M2/DAY, CONTINOUS IV INFUSION, ON DAYS 4-6, CYCLE 2
     Route: 042
     Dates: start: 20140905, end: 20140908
  2. IDARUBICIN HYDROCHLORIDE. [Suspect]
     Active Substance: IDARUBICIN HYDROCHLORIDE
     Dosage: 12 MG/M2/DAY, IV OVER 15 MINUTES, ON DAYS 4-6, CYCLE 1, (CYCLE=28 DAYS)
     Route: 042
     Dates: start: 20140721, end: 20140723
  3. VORINOSTAT [Suspect]
     Active Substance: VORINOSTAT
     Dosage: 500 MG, TID, ON DAYS 1-3, (CYCLE 1, CYCLE=28 DAYS)
     Route: 048
     Dates: start: 20140718, end: 20140720
  4. VORINOSTAT [Suspect]
     Active Substance: VORINOSTAT
     Indication: ACUTE MYELOID LEUKAEMIA
     Dosage: 500 MG, TID, ON DAYS 1-3, (CYCLE 2, CYCLE=28 DAYS)
     Route: 048
     Dates: start: 20140902, end: 20140905
  5. IDARUBICIN HYDROCHLORIDE. [Suspect]
     Active Substance: IDARUBICIN HYDROCHLORIDE
     Indication: ACUTE MYELOID LEUKAEMIA
     Dosage: 8 MG/M2/DAY, OVER 15 MINUTES, ON DAYS 4-5, CYCLE 2
     Route: 042
     Dates: start: 20140905, end: 20140906
  6. CYTARABINE. [Suspect]
     Active Substance: CYTARABINE
     Dosage: 1500 MG/M2/DAY, CONTINUOUS IV INFUSION, ON DAYS 4-7, ( CYCLE 1, CYCLE=28 DAYS)
     Route: 042
     Dates: start: 20140721, end: 20140724

REACTIONS (1)
  - Febrile neutropenia [Recovering/Resolving]

NARRATIVE: CASE EVENT DATE: 20140915
